FAERS Safety Report 8055902-4 (Version None)
Quarter: 2011Q4

REPORT INFORMATION
  Report Type: 
  Country: None (occurrence: None)
  Receive Date: 20111219
  Receipt Date: 20110512
  Transmission Date: 20120403
  Serious: Yes (Other)
  Sender: FDA-Public Use
  Company Number: WAES 1105USA02139

PATIENT
  Age: 75 Year
  Sex: Female
  Weight: 69.8539 kg

DRUGS (1)
  1. JANUVIA [Suspect]
     Indication: DIABETES MELLITUS
     Dosage: DAILY/PO
     Route: 048
     Dates: start: 20100505, end: 20110210

REACTIONS (1)
  - PANCREATITIS [None]
